FAERS Safety Report 11702755 (Version 1)
Quarter: 2015Q4

REPORT INFORMATION
  Report Type: Spontaneous
  Country: IT (occurrence: IT)
  Receive Date: 20151105
  Receipt Date: 20151105
  Transmission Date: 20160304
  Serious: Yes (Hospitalization)
  Sender: FDA-Public Use
  Company Number: IT-WATSON-2015-22617

PATIENT
  Age: 66 Year
  Sex: Female

DRUGS (1)
  1. RAMIPRIL. [Suspect]
     Active Substance: RAMIPRIL
     Indication: HYPERTENSION
     Dosage: 2.5 MG, DAILY
     Route: 048
     Dates: start: 20150101, end: 20150818

REACTIONS (3)
  - Hypertension [Unknown]
  - Confusional state [Unknown]
  - Dysarthria [Unknown]

NARRATIVE: CASE EVENT DATE: 20150818
